FAERS Safety Report 5746926-8 (Version None)
Quarter: 2008Q2

REPORT INFORMATION
  Report Type: 
  Country: None (occurrence: None)
  Receive Date: 20080522
  Receipt Date: 20080513
  Transmission Date: 20081010
  Serious: Yes (Other)
  Sender: FDA-Public Use
  Company Number: BR-PFIZER INC-2008040476

PATIENT
  Sex: Female
  Weight: 60 kg

DRUGS (2)
  1. DEPO-PROVERA SUSPENSION/INJ [Suspect]
     Indication: CONTRACEPTION
     Dates: start: 20050101, end: 20050101
  2. DEPO-PROVERA SUSPENSION/INJ [Suspect]
     Dates: start: 20070601, end: 20070601

REACTIONS (9)
  - AMENORRHOEA [None]
  - ASTHENIA [None]
  - FEELING ABNORMAL [None]
  - HEADACHE [None]
  - HOT FLUSH [None]
  - INFERTILITY FEMALE [None]
  - IRRITABILITY [None]
  - PREMATURE MENOPAUSE [None]
  - WEIGHT INCREASED [None]
